FAERS Safety Report 16473047 (Version 2)
Quarter: 2019Q3

REPORT INFORMATION
  Report Type: Spontaneous
  Country: JP (occurrence: JP)
  Receive Date: 20190625
  Receipt Date: 20190823
  Transmission Date: 20191004
  Serious: Yes (Hospitalization)
  Sender: FDA-Public Use
  Company Number: JP-ELI_LILLY_AND_COMPANY-JP201906009873

PATIENT
  Sex: Male
  Weight: 69 kg

DRUGS (5)
  1. TRULICITY [Suspect]
     Active Substance: DULAGLUTIDE
     Indication: TYPE 2 DIABETES MELLITUS
     Dosage: 0.75 MG, WEEKLY (1/W)
     Route: 058
     Dates: start: 201807, end: 20190530
  2. TRICOR [Concomitant]
     Active Substance: FENOFIBRATE
     Indication: DYSLIPIDAEMIA
     Dosage: UNK
     Route: 048
  3. THYRADIN S [Concomitant]
     Active Substance: LEVOTHYROXINE SODIUM
     Indication: HYPOPITUITARISM
     Dosage: UNK
     Route: 048
     Dates: start: 2003
  4. CORTRIL [Concomitant]
     Active Substance: HYDROCORTISONE
     Indication: HYPOPITUITARISM
     Dosage: UNK
     Route: 048
     Dates: start: 2003
  5. MINIRINMELT [Concomitant]
     Active Substance: DESMOPRESSIN ACETATE
     Indication: HYPOPITUITARISM
     Dosage: UNK
     Route: 048
     Dates: start: 201703

REACTIONS (1)
  - Bile duct stone [Recovered/Resolved]

NARRATIVE: CASE EVENT DATE: 20190529
